FAERS Safety Report 23297166 (Version 1)
Quarter: 2023Q4

REPORT INFORMATION
  Report Type: Spontaneous
  Country: US (occurrence: US)
  Receive Date: 20231214
  Receipt Date: 20231214
  Transmission Date: 20240110
  Serious: No
  Sender: FDA-Public Use
  Company Number: US-NEUROCRINE BIOSCIENCES INC.-2023NBI10560

PATIENT
  Age: 71 Year
  Sex: Male

DRUGS (15)
  1. INGREZZA [Suspect]
     Active Substance: VALBENAZINE
     Dosage: UNK
     Route: 065
  2. AMIODARONE [Concomitant]
     Active Substance: AMIODARONE
  3. ATORVASTATIN [Concomitant]
     Active Substance: ATORVASTATIN
  4. CLONAZEPAM [Concomitant]
     Active Substance: CLONAZEPAM
  5. DIAZEPAM [Concomitant]
     Active Substance: DIAZEPAM
  6. FUROSEMIDE [Concomitant]
     Active Substance: FUROSEMIDE
  7. HALOPERIDOL [Concomitant]
     Active Substance: HALOPERIDOL
  8. LAMOTRIGINE [Concomitant]
     Active Substance: LAMOTRIGINE
  9. METOPROLOL TARTRATE [Concomitant]
     Active Substance: METOPROLOL TARTRATE
  10. MIRTAZAPINE [Concomitant]
     Active Substance: MIRTAZAPINE
  11. OZEMPIC [Concomitant]
     Active Substance: SEMAGLUTIDE
  12. SILDENAFIL [Concomitant]
     Active Substance: SILDENAFIL
  13. TAMSULOSIN [Concomitant]
     Active Substance: TAMSULOSIN
  14. TIKOSYN [Concomitant]
     Active Substance: DOFETILIDE
  15. VENLAFAXINE [Concomitant]
     Active Substance: VENLAFAXINE HYDROCHLORIDE

REACTIONS (2)
  - Depression [Recovered/Resolved]
  - Fatigue [Recovered/Resolved]
